FAERS Safety Report 19653692 (Version 1)
Quarter: 2021Q3

REPORT INFORMATION
  Report Type: Spontaneous
  Country: US (occurrence: US)
  Receive Date: 20210803
  Receipt Date: 20210803
  Transmission Date: 20211014
  Serious: No
  Sender: FDA-Public Use
  Company Number: US-PFIZER INC-2021615059

PATIENT
  Age: 85 Year
  Sex: Male
  Weight: 79.38 kg

DRUGS (1)
  1. SUTENT [Suspect]
     Active Substance: SUNITINIB MALATE
     Indication: GASTROINTESTINAL STROMAL TUMOUR
     Dosage: 25 MG, CYCLIC (TAKES IT FOR 2 WEEKS AND IS OFF FOR A WEEK)
     Dates: start: 2017

REACTIONS (3)
  - Hypoacusis [Unknown]
  - Off label use [Unknown]
  - Product dose omission issue [Unknown]
